FAERS Safety Report 10076361 (Version 1)
Quarter: 2014Q2

REPORT INFORMATION
  Report Type: Spontaneous
  Country: IE (occurrence: IE)
  Receive Date: 20140414
  Receipt Date: 20140414
  Transmission Date: 20141212
  Serious: Yes (Hospitalization)
  Sender: FDA-Public Use
  Company Number: IE-IPSEN BIOPHARMACEUTICALS, INC.-2014-1669

PATIENT
  Age: 7 Year
  Sex: Male

DRUGS (1)
  1. DYSPORT [Suspect]
     Indication: PRODUCT USED FOR UNKNOWN INDICATION
     Dosage: 55 UNITS/KG
     Route: 030
     Dates: start: 201403, end: 201403

REACTIONS (1)
  - Respiratory arrest [Not Recovered/Not Resolved]
